FAERS Safety Report 22789555 (Version 3)
Quarter: 2024Q1

REPORT INFORMATION
  Report Type: Report from Study
  Country: US (occurrence: US)
  Receive Date: 20230804
  Receipt Date: 20240315
  Transmission Date: 20240410
  Serious: Yes (Hospitalization, Other)
  Sender: FDA-Public Use
  Company Number: US-SHIRE-US202004122

PATIENT
  Age: 68 Year
  Sex: Female

DRUGS (8)
  1. TEDUGLUTIDE [Suspect]
     Active Substance: TEDUGLUTIDE
     Indication: Short-bowel syndrome
     Dosage: 2.85 MILLIGRAM, QD
     Route: 058
     Dates: start: 20190111
  2. TEDUGLUTIDE [Suspect]
     Active Substance: TEDUGLUTIDE
     Indication: Short-bowel syndrome
     Dosage: 2.85 MILLIGRAM, QD
     Route: 058
     Dates: start: 20190111
  3. TEDUGLUTIDE [Suspect]
     Active Substance: TEDUGLUTIDE
     Indication: Short-bowel syndrome
     Dosage: 2.85 MILLIGRAM, QD
     Route: 058
     Dates: start: 20190111
  4. TEDUGLUTIDE [Suspect]
     Active Substance: TEDUGLUTIDE
     Indication: Short-bowel syndrome
     Dosage: 2.85 MILLIGRAM, QD
     Route: 058
     Dates: start: 20190111
  5. TEDUGLUTIDE [Suspect]
     Active Substance: TEDUGLUTIDE
     Dosage: 2.85 MILLIGRAM, QD
     Route: 058
     Dates: start: 20210521
  6. TEDUGLUTIDE [Suspect]
     Active Substance: TEDUGLUTIDE
     Dosage: 2.85 MILLIGRAM, QD
     Route: 058
     Dates: start: 20210521
  7. TEDUGLUTIDE [Suspect]
     Active Substance: TEDUGLUTIDE
     Dosage: 2.85 MILLIGRAM, QD
     Route: 058
     Dates: start: 20210521
  8. TEDUGLUTIDE [Suspect]
     Active Substance: TEDUGLUTIDE
     Dosage: 2.85 MILLIGRAM, QD
     Route: 058
     Dates: start: 20210521

REACTIONS (5)
  - Vascular device infection [Unknown]
  - Pneumonia [Not Recovered/Not Resolved]
  - Hypoxia [Unknown]
  - Blood magnesium decreased [Unknown]
  - Intestinal obstruction [Recovered/Resolved]

NARRATIVE: CASE EVENT DATE: 20200126
